FAERS Safety Report 10929111 (Version 4)
Quarter: 2015Q2

REPORT INFORMATION
  Report Type: Spontaneous
  Country: US (occurrence: US)
  Receive Date: 20150319
  Receipt Date: 20150524
  Transmission Date: 20150821
  Serious: No
  Sender: FDA-Public Use
  Company Number: US-JNJFOC-20140909359

PATIENT
  Age: 34 Year
  Sex: Female

DRUGS (1)
  1. METHYLPHENIDATE [Suspect]
     Active Substance: METHYLPHENIDATE
     Indication: NARCOLEPSY
     Route: 048

REACTIONS (2)
  - Product use issue [Unknown]
  - Substance-induced psychotic disorder [Unknown]
